FAERS Safety Report 23922618 (Version 1)
Quarter: 2024Q2

REPORT INFORMATION
  Report Type: Spontaneous
  Country: IT (occurrence: IT)
  Receive Date: 20240531
  Receipt Date: 20240531
  Transmission Date: 20240716
  Serious: Yes (Other)
  Sender: FDA-Public Use
  Company Number: None

PATIENT
  Age: 55 Year
  Sex: Female

DRUGS (2)
  1. TECFIDERA [Suspect]
     Active Substance: DIMETHYL FUMARATE
     Indication: Multiple sclerosis
     Dosage: THE PATIENT HAS BEEN ON TECFIDERA (DIMETHYL FUMARATE) THERAPY SINCE 08-OCT-2015. AS OF 13-APR-201...
     Route: 050
     Dates: start: 20151008
  2. TECFIDERA [Suspect]
     Active Substance: DIMETHYL FUMARATE
     Dosage: THE PATIENT HAS BEEN ON TECFIDERA (DIMETHYL FUMARATE) THERAPY SINCE 08-OCT-2015. AS OF 13-APR-201...
     Route: 050
     Dates: start: 20170413

REACTIONS (1)
  - Basal cell carcinoma [Recovered/Resolved with Sequelae]

NARRATIVE: CASE EVENT DATE: 20231102
